FAERS Safety Report 7506584-9 (Version None)
Quarter: 2011Q2

REPORT INFORMATION
  Report Type: 
  Country: None (occurrence: None)
  Receive Date: 20110519
  Receipt Date: 20110505
  Transmission Date: 20111010
  Serious: Yes (Hospitalization, Other)
  Sender: FDA-Public Use
  Company Number: 2011MA005439

PATIENT
  Age: 40 Year
  Sex: Male

DRUGS (10)
  1. VERAPAMIL HYDROCHLORIDE [Suspect]
     Indication: SUICIDE ATTEMPT
     Dosage: 21.6 G; 1X; PO
     Route: 048
  2. SERTRALINE HYDROCHLORIDE [Concomitant]
  3. ZOLPIDEM [Concomitant]
  4. METOPROLOL SUCCINATE [Concomitant]
  5. PAROXETINE [Concomitant]
  6. CHLORDIAZEPOXIDE [Concomitant]
  7. ACETAMINOPHEN [Concomitant]
  8. ETHANOL [Suspect]
  9. DEPAKOTE [Concomitant]
  10. KLONOPIN [Concomitant]

REACTIONS (16)
  - SUICIDE ATTEMPT [None]
  - PULMONARY OEDEMA [None]
  - HYPOTENSION [None]
  - BLOOD ETHANOL INCREASED [None]
  - ABDOMINAL DISTENSION [None]
  - ATRIOVENTRICULAR BLOCK COMPLETE [None]
  - VOMITING [None]
  - OVERDOSE [None]
  - BRADYCARDIA [None]
  - NAUSEA [None]
  - PNEUMONIA ASPIRATION [None]
  - CARDIAC ARREST [None]
  - HYPOPERFUSION [None]
  - TACHYCARDIA [None]
  - DRUG SCREEN POSITIVE [None]
  - LETHARGY [None]
